FAERS Safety Report 12558493 (Version 1)
Quarter: 2016Q3

REPORT INFORMATION
  Report Type: Spontaneous
  Country: US (occurrence: US)
  Receive Date: 20160714
  Receipt Date: 20160714
  Transmission Date: 20161109
  Serious: Yes (Other)
  Sender: FDA-Public Use
  Company Number: US-BEH-2016070948

PATIENT
  Age: 43 Year
  Sex: Female

DRUGS (2)
  1. APIXABAN [Concomitant]
     Active Substance: APIXABAN
     Indication: DEEP VEIN THROMBOSIS
     Dosage: 5 MG, UNK
     Route: 065
  2. KCENTRA [Suspect]
     Active Substance: COAGULATION FACTOR IX HUMAN\COAGULATION FACTOR VII HUMAN\COAGULATION FACTOR X HUMAN\PROTEIN C\PROTEIN S HUMAN\PROTHROMBIN
     Indication: INTERNATIONAL NORMALISED RATIO INCREASED
     Dosage: 50 IU/KG, UNK
     Route: 042

REACTIONS (2)
  - Cerebral infarction [Unknown]
  - Hemiparesis [Unknown]
